FAERS Safety Report 7097894-0 (Version None)
Quarter: 2010Q4

REPORT INFORMATION
  Report Type: 
  Country: None (occurrence: None)
  Receive Date: 20101112
  Receipt Date: 20101105
  Transmission Date: 20110411
  Serious: Yes (Hospitalization)
  Sender: FDA-Public Use
  Company Number: FR-KINGPHARMUSA00001-K201001363

PATIENT
  Age: 59 Year
  Sex: Male

DRUGS (4)
  1. ALTACE [Suspect]
     Indication: ATRIAL FIBRILLATION
     Dosage: 5 MG, QD
     Route: 048
     Dates: start: 19970101
  2. ALTACE [Suspect]
     Indication: HYPERTENSION
  3. MULTAQ [Suspect]
     Indication: ATRIAL FIBRILLATION
     Dosage: 400 MG, BID
     Route: 048
     Dates: start: 20100719, end: 20100806
  4. MARCUMAR [Concomitant]
     Dosage: UNK
     Dates: start: 19970101

REACTIONS (4)
  - AUTOIMMUNE PANCREATITIS [None]
  - GASTRITIS [None]
  - LIPASE INCREASED [None]
  - OEDEMATOUS PANCREATITIS [None]
